FAERS Safety Report 7680856-X (Version None)
Quarter: 2011Q3

REPORT INFORMATION
  Report Type: 
  Country: None (occurrence: None)
  Receive Date: 20110812
  Receipt Date: 20110804
  Transmission Date: 20111222
  Serious: Yes (Hospitalization, Disabling, Other)
  Sender: FDA-Public Use
  Company Number: US-MERCK-1107USA00010

PATIENT
  Age: 36 Year
  Sex: Female

DRUGS (3)
  1. FOSAMAX PLUS D [Suspect]
     Indication: OSTEOPENIA
     Route: 048
     Dates: start: 19970801, end: 20080801
  2. FOSAMAX [Suspect]
     Indication: OSTEOPOROSIS
     Route: 048
     Dates: start: 19970801, end: 20080801
  3. FOSAMAX [Suspect]
     Indication: OSTEOPENIA
     Route: 048
     Dates: start: 19970801, end: 20080801

REACTIONS (14)
  - NEOPLASM [None]
  - BONE ABSCESS [None]
  - OSTEOARTHRITIS [None]
  - FEMUR FRACTURE [None]
  - BACK DISORDER [None]
  - INTERVERTEBRAL DISC DISORDER [None]
  - GINGIVAL RECESSION [None]
  - SQUAMOUS CELL CARCINOMA [None]
  - NEPHROLITHIASIS [None]
  - CALCIUM DEFICIENCY [None]
  - ARTHROPATHY [None]
  - GINGIVAL DISORDER [None]
  - MENISCUS LESION [None]
  - LOW TURNOVER OSTEOPATHY [None]
